FAERS Safety Report 24057710 (Version 2)
Quarter: 2025Q2

REPORT INFORMATION
  Report Type: Report from Study
  Country: US (occurrence: US)
  Receive Date: 20240706
  Receipt Date: 20250417
  Transmission Date: 20250716
  Serious: Yes (Hospitalization, Other)
  Sender: ABBVIE
  Company Number: US-ABBVIE-5827724

PATIENT
  Age: 64 Year
  Sex: Female

DRUGS (2)
  1. HUMIRA [Suspect]
     Active Substance: ADALIMUMAB
     Indication: Rheumatoid arthritis
     Route: 058
     Dates: start: 20230115
  2. HUMIRA [Suspect]
     Active Substance: ADALIMUMAB
     Route: 058

REACTIONS (11)
  - Systemic lupus erythematosus [Recovering/Resolving]
  - Vascular access site infection [Unknown]
  - Fistula [Recovering/Resolving]
  - Vascular access complication [Unknown]
  - Vascular access site haemorrhage [Unknown]
  - Rheumatoid arthritis [Unknown]
  - Swelling [Unknown]
  - Fistula [Recovered/Resolved]
  - Skin exfoliation [Recovered/Resolved]
  - Seborrhoeic keratosis [Recovered/Resolved]
  - Postoperative thrombosis [Recovered/Resolved]

NARRATIVE: CASE EVENT DATE: 20240601
